FAERS Safety Report 4504233-5 (Version None)
Quarter: 2004Q4

REPORT INFORMATION
  Report Type: 
  Country: None (occurrence: None)
  Receive Date: 20041116
  Receipt Date: 20041116
  Transmission Date: 20050328
  Serious: Yes (Hospitalization)
  Sender: FDA-Public Use
  Company Number: None

PATIENT
  Age: 55 Year
  Sex: Male
  Weight: 74.3899 kg

DRUGS (6)
  1. METOPROLOL [Suspect]
     Indication: CORONARY ARTERY DISEASE
     Dosage: 25 MG BID
     Dates: start: 20040610, end: 20040721
  2. FLUNISOLIDE [Concomitant]
  3. MECLIZINE HCL [Concomitant]
  4. METOPROLOL TARTRATE [Concomitant]
  5. RANITIDINE HCL [Concomitant]
  6. SIMVASTATIN [Concomitant]

REACTIONS (3)
  - BLOOD PRESSURE ORTHOSTATIC [None]
  - DIZZINESS [None]
  - FALL [None]
